FAERS Safety Report 11295827 (Version 1)
Quarter: 2015Q3

REPORT INFORMATION
  Report Type: Spontaneous
  Country: US (occurrence: None)
  Receive Date: 20150722
  Receipt Date: 20150722
  Transmission Date: 20151125
  Serious: Yes (Hospitalization)
  Sender: FDA-Public Use
  Company Number: None

PATIENT
  Age: 57 Year
  Sex: Male

DRUGS (1)
  1. DICLOFENAC [Suspect]
     Active Substance: DICLOFENAC
     Indication: PAIN
     Route: 048
     Dates: start: 20100505, end: 20100904

REACTIONS (5)
  - Nephropathy toxic [None]
  - Drug effect decreased [None]
  - Night sweats [None]
  - Acute kidney injury [None]
  - Blood pressure decreased [None]

NARRATIVE: CASE EVENT DATE: 20100904
